FAERS Safety Report 6280136-3 (Version None)
Quarter: 2009Q3

REPORT INFORMATION
  Report Type: 
  Country: None (occurrence: None)
  Receive Date: 20090723
  Receipt Date: 20090713
  Transmission Date: 20100115
  Serious: Yes (Hospitalization, Disabling, Other)
  Sender: FDA-Public Use
  Company Number: PHHY2009BR29178

PATIENT
  Age: 54 Year
  Sex: Male

DRUGS (5)
  1. ACLASTA [Suspect]
     Indication: OSTEOPOROSIS
     Dosage: UNK
     Route: 042
     Dates: start: 20090708
  2. CALTRATE [Concomitant]
  3. BUSPIRONE HCL [Concomitant]
  4. VALERIAN [Concomitant]
  5. ANTIDEPRESSANTS [Concomitant]

REACTIONS (5)
  - DYSPNOEA [None]
  - LEUKOCYTOSIS [None]
  - LYMPHOPENIA [None]
  - PAIN [None]
  - QRS AXIS ABNORMAL [None]
